FAERS Safety Report 8309291-8 (Version None)
Quarter: 2012Q2

REPORT INFORMATION
  Report Type: 
  Country: None (occurrence: None)
  Receive Date: 20120424
  Receipt Date: 20120416
  Transmission Date: 20120825
  Serious: Yes (Other)
  Sender: FDA-Public Use
  Company Number: US-ASTRAZENECA-2012SE25033

PATIENT
  Sex: Male

DRUGS (1)
  1. PRILOSEC [Suspect]
     Route: 048

REACTIONS (6)
  - TRAUMATIC LUNG INJURY [None]
  - ABDOMINAL PAIN UPPER [None]
  - RIB FRACTURE [None]
  - DRUG INEFFECTIVE [None]
  - ULCER HAEMORRHAGE [None]
  - ROAD TRAFFIC ACCIDENT [None]
